FAERS Safety Report 24326185 (Version 1)
Quarter: 2024Q3

REPORT INFORMATION
  Report Type: Other
  Country: IT (occurrence: IT)
  Receive Date: 20240917
  Receipt Date: 20240917
  Transmission Date: 20241017
  Serious: Yes (Other)
  Sender: BIONPHARMA
  Company Number: IT-Bion-013853

PATIENT
  Age: 52 Year
  Sex: Male

DRUGS (1)
  1. DICLOFENAC POTASSIUM [Suspect]
     Active Substance: DICLOFENAC POTASSIUM
     Indication: Analgesic intervention supportive therapy
     Dosage: 0.1% DROPS

REACTIONS (3)
  - Corneal perforation [Recovered/Resolved]
  - Ulcerative keratitis [Recovered/Resolved]
  - Corneal disorder [Recovered/Resolved]
